FAERS Safety Report 13086090 (Version 1)
Quarter: 2017Q1

REPORT INFORMATION
  Report Type: Spontaneous
  Country: CA (occurrence: CA)
  Receive Date: 20170104
  Receipt Date: 20170104
  Transmission Date: 20170428
  Serious: Yes (Death)
  Sender: FDA-Public Use
  Company Number: CA-PFIZER INC-03H-028-0234968-00

PATIENT
  Age: 11 Year
  Sex: Male

DRUGS (2)
  1. METHOTREXATE SODIUM. [Suspect]
     Active Substance: METHOTREXATE SODIUM
     Indication: ACUTE LYMPHOCYTIC LEUKAEMIA
     Dosage: 20 MG, UNK
     Route: 037
  2. LEUCOVORIN. [Suspect]
     Active Substance: LEUCOVORIN
     Indication: OVERDOSE
     Dosage: UNK
     Route: 037

REACTIONS (3)
  - Neurotoxicity [Fatal]
  - Incorrect route of drug administration [Fatal]
  - Drug administration error [Fatal]

NARRATIVE: CASE EVENT DATE: 19960101
